FAERS Safety Report 25940068 (Version 2)
Quarter: 2025Q4

REPORT INFORMATION
  Report Type: Spontaneous
  Country: CA (occurrence: CA)
  Receive Date: 20251020
  Receipt Date: 20251112
  Transmission Date: 20260117
  Serious: Yes (Hospitalization)
  Sender: TEVA
  Company Number: CA-TEVA-VS-3383038

PATIENT
  Age: 31 Year
  Sex: Male

DRUGS (5)
  1. PANTOPRAZOLE [Suspect]
     Active Substance: PANTOPRAZOLE
     Indication: Malabsorption
     Route: 065
  2. CHOLECALCIFEROL [Suspect]
     Active Substance: CHOLECALCIFEROL
     Indication: Malabsorption
     Route: 065
  3. CHOLECALCIFEROL [Suspect]
     Active Substance: CHOLECALCIFEROL
     Indication: Malabsorption
     Route: 065
  4. ZOLEDRONIC ACID [Suspect]
     Active Substance: ZOLEDRONIC ACID
     Indication: Osteoporosis
     Route: 065
     Dates: start: 202404
  5. CALCIUM CARBONATE [Concomitant]
     Active Substance: CALCIUM CARBONATE
     Indication: Malabsorption
     Route: 065

REACTIONS (5)
  - Hypophosphataemia [Recovered/Resolved]
  - Hyperparathyroidism [Recovered/Resolved]
  - Drug ineffective [Unknown]
  - Hypomagnesaemia [Recovered/Resolved]
  - Hypocalcaemia [Recovered/Resolved]

NARRATIVE: CASE EVENT DATE: 20240401
